FAERS Safety Report 5651835-9 (Version None)
Quarter: 2008Q1

REPORT INFORMATION
  Report Type: 
  Country: None (occurrence: None)
  Receive Date: 20080131
  Receipt Date: 20071029
  Transmission Date: 20080703
  Serious: No
  Sender: FDA-Public Use
  Company Number: US200710007266

PATIENT
  Age: 63 Year
  Sex: Female

DRUGS (4)
  1. BYETTA [Suspect]
     Indication: TYPE 2 DIABETES MELLITUS
     Dosage: 5 UG, 2/D, SUBCUTANEOUS ; 10 UG, 2/D, SUBCUTANEOUS ; 5 UG, 3/D, SUBCUTANEOUS
     Route: 058
     Dates: start: 20050101, end: 20050101
  2. METFORMIN HCL [Concomitant]
  3. NOVOLOG MIX 70/30 [Concomitant]
  4. HUMULIN N [Concomitant]

REACTIONS (6)
  - ASTHENIA [None]
  - FEELING COLD [None]
  - IRON DEFICIENCY [None]
  - NAUSEA [None]
  - VOMITING [None]
  - WEIGHT DECREASED [None]
